APPROVED DRUG PRODUCT: DRAXIMAGE DTPA
Active Ingredient: TECHNETIUM TC-99M PENTETATE KIT
Strength: N/A
Dosage Form/Route: INJECTABLE;INJECTION
Application: N018511 | Product #001 | TE Code: AP
Applicant: JUBILANT DRAXIMAGE INC DBA JUBILANT RADIOPHARMA
Approved: Dec 29, 1989 | RLD: Yes | RS: Yes | Type: RX